FAERS Safety Report 20471531 (Version 1)
Quarter: 2022Q1

REPORT INFORMATION
  Report Type: Spontaneous
  Country: US (occurrence: US)
  Receive Date: 20220214
  Receipt Date: 20220214
  Transmission Date: 20220424
  Serious: No
  Sender: FDA-Public Use
  Company Number: US-SANOFI-00964861

PATIENT
  Age: 89 Year
  Sex: Female

DRUGS (2)
  1. LANTUS SOLOSTAR [Suspect]
     Active Substance: INSULIN GLARGINE
     Dosage: DRUG STRUCTURE DOSAGE : 23 AM 5 PM DRUG INTERVAL DOSAGE : TWICE DAILY
  2. LYUMJEV [Concomitant]
     Active Substance: INSULIN LISPRO-AABC

REACTIONS (1)
  - Product use issue [Unknown]
